FAERS Safety Report 5939839-X (Version None)
Quarter: 2008Q4

REPORT INFORMATION
  Report Type: 
  Country: None (occurrence: None)
  Receive Date: 20081104
  Receipt Date: 20081026
  Transmission Date: 20090506
  Serious: Yes (Other)
  Sender: FDA-Public Use
  Company Number: US-JNJFOC-20081006514

PATIENT
  Sex: Male

DRUGS (1)
  1. CHILDRENS TYLENOL PLUS FLU BUBBLEGUM [Suspect]
     Indication: PYREXIA

REACTIONS (4)
  - BODY TEMPERATURE DECREASED [None]
  - DYSPNOEA [None]
  - INCORRECT DOSE ADMINISTERED [None]
  - SOMNOLENCE [None]
